FAERS Safety Report 20904694 (Version 2)
Quarter: 2022Q4

REPORT INFORMATION
  Report Type: Spontaneous
  Country: ES (occurrence: ES)
  Receive Date: 20220602
  Receipt Date: 20221020
  Transmission Date: 20230113
  Serious: Yes (Other)
  Sender: FDA-Public Use
  Company Number: ES-AEMPS-1193142

PATIENT
  Age: 48 Year
  Sex: Female
  Weight: 70 kg

DRUGS (1)
  1. AIMOVIG [Suspect]
     Active Substance: ERENUMAB-AOOE
     Indication: Migraine
     Dosage: 140 MILLIGRAM  28D (INYECTABLE)
     Route: 058
     Dates: start: 20220503

REACTIONS (3)
  - Oedema peripheral [Recovered/Resolved]
  - Urinary retention [Recovered/Resolved]
  - Hypertension [Recovered/Resolved]

NARRATIVE: CASE EVENT DATE: 20220507
